FAERS Safety Report 4867049-6 (Version None)
Quarter: 2005Q4

REPORT INFORMATION
  Report Type: 
  Country: None (occurrence: None)
  Receive Date: 20051222
  Receipt Date: 20051216
  Transmission Date: 20060501
  Serious: Yes (Death)
  Sender: FDA-Public Use
  Company Number: 2005-12-0806

PATIENT
  Age: 74 Year
  Sex: Female
  Weight: 62 kg

DRUGS (6)
  1. TEMODAL [Suspect]
     Indication: GLIOBLASTOMA
     Dosage: ORAL
     Route: 048
  2. FORTECORTIN [Concomitant]
  3. BELOC-ZOK [Concomitant]
  4. NORVASC [Concomitant]
  5. HUMALOG (INSULIN ANALOG) [Concomitant]
  6. ACTRAPID [Concomitant]

REACTIONS (1)
  - DEATH [None]
